FAERS Safety Report 5393891-1 (Version None)
Quarter: 2007Q3

REPORT INFORMATION
  Report Type: 
  Country: None (occurrence: None)
  Receive Date: 20070723
  Receipt Date: 20070716
  Transmission Date: 20080115
  Serious: Yes (Other)
  Sender: FDA-Public Use
  Company Number: B0480119A

PATIENT
  Age: 2 Year
  Sex: Female
  Weight: 9.5 kg

DRUGS (2)
  1. ZINACEF [Suspect]
     Dosage: .45G TWICE PER DAY
     Route: 042
     Dates: start: 20070705, end: 20070706
  2. RIBAVIRIN [Concomitant]
     Route: 042

REACTIONS (4)
  - DRUG ERUPTION [None]
  - LIP SWELLING [None]
  - RASH ERYTHEMATOUS [None]
  - RUBELLA [None]
